FAERS Safety Report 7470906-8 (Version None)
Quarter: 2011Q2

REPORT INFORMATION
  Report Type: 
  Country: None (occurrence: None)
  Receive Date: 20110510
  Receipt Date: 20110506
  Transmission Date: 20111010
  Serious: Yes (Other)
  Sender: FDA-Public Use
  Company Number: VE-PFIZER INC-2011091733

PATIENT
  Age: 62 Year
  Sex: Female

DRUGS (3)
  1. HUMULIN N [Concomitant]
     Indication: DIABETES MELLITUS
     Dosage: 70 IU, 1X/DAY
     Route: 058
  2. HUMULIN R [Concomitant]
     Indication: DIABETES MELLITUS
     Dosage: 5 IU, 1X/DAY
     Route: 058
  3. LIPITOR [Suspect]
     Indication: HYPERTRIGLYCERIDAEMIA
     Dosage: 40 MG, 1X/DAY
     Route: 048
     Dates: start: 20060101

REACTIONS (3)
  - HIP FRACTURE [None]
  - FALL [None]
  - FEMUR FRACTURE [None]
